FAERS Safety Report 6449576-3 (Version None)
Quarter: 2009Q4

REPORT INFORMATION
  Report Type: 
  Country: None (occurrence: None)
  Receive Date: 20091120
  Receipt Date: 20081205
  Transmission Date: 20100525
  Serious: Yes (Hospitalization)
  Sender: FDA-Public Use
  Company Number: US-AMGEN-QUU322439

PATIENT
  Sex: Male

DRUGS (2)
  1. ENBREL [Suspect]
     Indication: RHEUMATOID ARTHRITIS
     Route: 058
     Dates: start: 20080701
  2. ARAVA [Concomitant]
     Route: 048

REACTIONS (5)
  - BODY TEMPERATURE DECREASED [None]
  - FEELING ABNORMAL [None]
  - PLEURISY [None]
  - PNEUMONIA [None]
  - PYREXIA [None]
